FAERS Safety Report 6310207-4 (Version None)
Quarter: 2009Q3

REPORT INFORMATION
  Report Type: 
  Country: None (occurrence: None)
  Receive Date: 20090814
  Receipt Date: 20090813
  Transmission Date: 20100115
  Serious: Yes (Other)
  Sender: FDA-Public Use
  Company Number: US-B.I. PHARMACEUTICALS,INC./RIDGEFIELD-2009-BP-06996BP

PATIENT
  Sex: Female
  Weight: 63 kg

DRUGS (12)
  1. SPIRIVA [Suspect]
     Indication: BRONCHITIS
     Dosage: 18 MCG
     Route: 055
     Dates: start: 20090606
  2. SPIRIVA [Suspect]
     Indication: OXYGEN SATURATION DECREASED
  3. SPIRIVA [Suspect]
     Indication: COUGH
  4. BENAZEPRIL HYDROCHLORIDE [Concomitant]
     Indication: HYPERTENSION
     Dosage: 10 MG
     Route: 048
     Dates: start: 20060101
  5. LEVOTHYROXINE [Concomitant]
     Indication: HYPOTHYROIDISM
     Dosage: 75 MCG
     Dates: start: 20040101
  6. PROAIR HFA [Concomitant]
     Indication: BRONCHITIS
     Route: 055
  7. PROAIR HFA [Concomitant]
     Indication: ASTHMA
  8. ERYTHROMYCIN [Concomitant]
     Indication: BRONCHITIS
     Route: 048
  9. PREDNISONE [Concomitant]
     Indication: BRONCHITIS
     Route: 048
  10. AZITHROMYCIN [Concomitant]
  11. QVAR 40 [Concomitant]
     Dosage: 80 MCG
     Dates: start: 20090601
  12. ALBUTEROL [Concomitant]
     Dates: start: 20050101

REACTIONS (4)
  - CHEST PAIN [None]
  - DYSPNOEA [None]
  - LUNG DISORDER [None]
  - OESOPHAGEAL PAIN [None]
